FAERS Safety Report 24835838 (Version 1)
Quarter: 2025Q1

REPORT INFORMATION
  Report Type: Spontaneous
  Country: ZA (occurrence: ZA)
  Receive Date: 20250113
  Receipt Date: 20250113
  Transmission Date: 20250408
  Serious: Yes (Hospitalization, Other)
  Sender: AMGEN
  Company Number: ZA-SERVIER-S24017529

PATIENT
  Age: 43 Year
  Sex: Female

DRUGS (23)
  1. IVABRADINE HYDROCHLORIDE [Suspect]
     Active Substance: IVABRADINE HYDROCHLORIDE
     Indication: Angina pectoris
     Dosage: 5 MG, BID
     Route: 048
  2. ENALAPRIL\HYDROCHLOROTHIAZIDE [Concomitant]
     Active Substance: ENALAPRIL\HYDROCHLOROTHIAZIDE
     Indication: Hypertension
     Route: 048
  3. DOFETILIDE [Concomitant]
     Active Substance: DOFETILIDE
     Indication: Hypertension
     Dosage: 40 MG, QD
     Route: 048
  4. POTASSIUM CHLORIDE [Concomitant]
     Active Substance: POTASSIUM CHLORIDE
     Indication: Hypokalaemia
     Dosage: 1200 MG, QD
     Route: 048
  5. ALPRAZOLAM [Concomitant]
     Active Substance: ALPRAZOLAM
     Indication: Anxiety
     Dosage: 0.5 MG, QD
     Route: 048
  6. ADCO DOL [Concomitant]
     Indication: Product used for unknown indication
     Route: 048
  7. ACETAMINOPHEN [Concomitant]
     Active Substance: ACETAMINOPHEN
     Indication: Product used for unknown indication
     Route: 048
  8. Omiflux [Concomitant]
     Indication: Gastrooesophageal reflux disease
     Dosage: 20 MG, QD AT NIGHT
     Route: 048
  9. BIO METRONIDAZOLE [Concomitant]
     Indication: Product used for unknown indication
     Dosage: 400 MG, BID
     Route: 048
  10. METOCLOPRAMIDE HYDROCHLORIDE [Concomitant]
     Active Substance: METOCLOPRAMIDE HYDROCHLORIDE
     Indication: Product used for unknown indication
     Dosage: 10 MG, BID
     Route: 048
  11. Sandoz co amoxyclav [Concomitant]
     Indication: Product used for unknown indication
     Dosage: 625 MG, BID
     Route: 048
  12. Buscopan compositum [Concomitant]
     Indication: Product used for unknown indication
     Dosage: 1 DF, TID
     Route: 048
  13. ACETYLCYSTEINE [Concomitant]
     Active Substance: ACETYLCYSTEINE
     Indication: Product used for unknown indication
     Route: 048
  14. BETAPHLEM [Concomitant]
     Indication: Product used for unknown indication
     Dosage: 10 MG, TID
     Route: 048
  15. Allermine [Concomitant]
     Indication: Hypersensitivity
     Dosage: 10 MG, QD
     Route: 048
  16. AMMONIUM CHLORIDE\DIPHENHYDRAMINE\ETOFYLLINE\SODIUM CITRATE\THEOPHYLLI [Concomitant]
     Active Substance: AMMONIUM CHLORIDE\DIPHENHYDRAMINE\ETOFYLLINE\SODIUM CITRATE\THEOPHYLLINE
     Indication: Product used for unknown indication
     Dosage: 3 DF, QD
     Route: 048
  17. FAMUCAPS [Concomitant]
     Indication: Product used for unknown indication
     Dosage: 2 DF, TID
     Route: 048
  18. BETASLEEP [Concomitant]
     Indication: Product used for unknown indication
     Dosage: 50 MG, QD
     Route: 048
  19. ACETAMINOPHEN\ORPHENADRINE CITRATE [Concomitant]
     Active Substance: ACETAMINOPHEN\ORPHENADRINE CITRATE
     Indication: Product used for unknown indication
     Dosage: 2 DF, TID
     Route: 048
  20. MYPAID FORTE [Concomitant]
     Active Substance: ACETAMINOPHEN\IBUPROFEN
     Indication: Product used for unknown indication
     Route: 048
  21. K fenak [Concomitant]
     Indication: Product used for unknown indication
     Dosage: 50 MG, TID
     Route: 048
  22. LOPERAMIDE [Concomitant]
     Active Substance: LOPERAMIDE
     Indication: Product used for unknown indication
     Route: 048
  23. AMOXICILLIN\CLAVULANATE POTASSIUM [Concomitant]
     Active Substance: AMOXICILLIN\CLAVULANATE POTASSIUM
     Indication: Product used for unknown indication
     Dosage: 1000 MG, BID
     Route: 048

REACTIONS (2)
  - Liver operation [Unknown]
  - Hepatic cyst ruptured [Unknown]

NARRATIVE: CASE EVENT DATE: 20240906
